FAERS Safety Report 8538358-4 (Version None)
Quarter: 2012Q3

REPORT INFORMATION
  Report Type: 
  Country: None (occurrence: None)
  Receive Date: 20120726
  Receipt Date: 20120724
  Transmission Date: 20120928
  Serious: Yes (Other)
  Sender: FDA-Public Use
  Company Number: US-PFIZER INC-2012179786

PATIENT
  Sex: Male
  Weight: 70.748 kg

DRUGS (5)
  1. LYRICA [Suspect]
     Indication: HERPES ZOSTER
     Dosage: 25 MG, 2X/DAY
     Route: 048
     Dates: start: 20120419
  2. METFORMIN HYDROCHLORIDE [Suspect]
     Indication: DIABETES MELLITUS
     Dosage: UNK
  3. LYRICA [Suspect]
     Indication: POST HERPETIC NEURALGIA
     Dosage: UNK
     Dates: start: 20120101
  4. NIACIN [Concomitant]
     Dosage: 750 MG, 2X/DAY
  5. METFORMIN HYDROCHLORIDE [Suspect]
     Dosage: 500 MG, 2X/DAY
     Dates: end: 20120601

REACTIONS (1)
  - HYPOGLYCAEMIA [None]
